FAERS Safety Report 4532044-3 (Version None)
Quarter: 2004Q4

REPORT INFORMATION
  Report Type: 
  Country: None (occurrence: None)
  Receive Date: 20041217
  Receipt Date: 20041215
  Transmission Date: 20050328
  Serious: Yes (Other)
  Sender: FDA-Public Use
  Company Number: THQ2004A01032

PATIENT

DRUGS (5)
  1. LANSOPRAZOLE [Suspect]
  2. DICLOFENAC (DICLOFENAC) [Concomitant]
  3. PREDNISOLONE [Concomitant]
  4. ASPIRIN [Concomitant]
  5. METFORMIN HCL [Concomitant]

REACTIONS (2)
  - CONVULSION [None]
  - MYOCLONUS [None]
